FAERS Safety Report 5451516-0 (Version None)
Quarter: 2007Q3

REPORT INFORMATION
  Report Type: 
  Country: None (occurrence: None)
  Receive Date: 20070913
  Receipt Date: 20070904
  Transmission Date: 20080115
  Serious: Yes (Other)
  Sender: FDA-Public Use
  Company Number: PHHO2007MX14707

PATIENT
  Age: 66 Year
  Sex: Female

DRUGS (2)
  1. DIOVAN HCT [Suspect]
     Indication: HYPERTENSION
     Dosage: 1/2 TABLET (160/25MG QD)
     Route: 048
     Dates: start: 20070814, end: 20070829
  2. CRESTOR [Concomitant]
     Indication: BLOOD CHOLESTEROL
     Dosage: 1/2 TABLET, QD
     Dates: start: 20070814, end: 20070817

REACTIONS (4)
  - BLINDNESS [None]
  - DIZZINESS [None]
  - HYPOTENSION [None]
  - OCULOGYRIC CRISIS [None]
